FAERS Safety Report 8394590-4 (Version None)
Quarter: 2012Q2

REPORT INFORMATION
  Report Type: 
  Country: None (occurrence: None)
  Receive Date: 20120530
  Receipt Date: 20120517
  Transmission Date: 20120825
  Serious: Yes (Other)
  Sender: FDA-Public Use
  Company Number: TR-MYLANLABS-2012S1010246

PATIENT
  Age: 51 Year
  Sex: Female

DRUGS (3)
  1. DULOXETINE HYDROCHLORIDE [Interacting]
     Indication: PANIC DISORDER
     Dosage: 60 MG/DAY
     Route: 065
  2. CIPROFLOXACIN [Suspect]
     Indication: URINARY TRACT INFECTION
     Dosage: 1500 MG/DAY
     Route: 065
  3. NEBIVOLOL [Concomitant]
     Indication: HYPERTENSION
     Dosage: 5 MG/DAY
     Route: 065

REACTIONS (2)
  - SEROTONIN SYNDROME [None]
  - DRUG INTERACTION [None]
